FAERS Safety Report 21948358 (Version 1)
Quarter: 2023Q1

REPORT INFORMATION
  Report Type: Spontaneous
  Country: US (occurrence: US)
  Receive Date: 20230203
  Receipt Date: 20230203
  Transmission Date: 20230417
  Serious: No
  Sender: FDA-Public Use
  Company Number: US-drreddys-SPO/USA/22/0159304

PATIENT
  Age: 79 Year
  Sex: Female

DRUGS (17)
  1. LENALIDOMIDE [Suspect]
     Active Substance: LENALIDOMIDE
     Indication: Plasma cell myeloma
     Dosage: TAKE 1 CAPSULE WHOLE BY MOUTH WITH WATER AT SAME TIME DAILY ON DAYS 1-14 OF EACH 21 DAY CYCLE
     Route: 048
     Dates: start: 202211
  2. ESTRADIOL VALERATE [Concomitant]
     Active Substance: ESTRADIOL VALERATE
     Indication: Product used for unknown indication
  3. OMEPRAZOLE [Concomitant]
     Active Substance: OMEPRAZOLE
     Indication: Product used for unknown indication
  4. TRAMADOL HCL TAB 50MG [Concomitant]
     Indication: Product used for unknown indication
  5. IMODIUM A-D TAB 2MG [Concomitant]
     Indication: Product used for unknown indication
  6. GABAPENTIN CAP 100MG [Concomitant]
     Indication: Product used for unknown indication
  7. ACYCLOVIR TAB 800MG [Concomitant]
     Indication: Product used for unknown indication
  8. ASPIRIN TBE 81MG [Concomitant]
     Indication: Product used for unknown indication
  9. CINNAMON CAP 500MG [Concomitant]
     Indication: Product used for unknown indication
  10. CRANBERRY CAP 405MG [Concomitant]
     Indication: Product used for unknown indication
  11. DEXAMETHASONE TAB 4MG [Concomitant]
     Indication: Product used for unknown indication
  12. DOCUSATE CAL CAP 240MG [Concomitant]
     Indication: Product used for unknown indication
  13. FISH OIL CAP 1200MG [Concomitant]
     Indication: Product used for unknown indication
  14. GLYBURIDE [Concomitant]
     Active Substance: GLYBURIDE
     Indication: Product used for unknown indication
  15. VITAMIN C TAB 1000MG [Concomitant]
     Indication: Product used for unknown indication
  16. XGEVA SOL 120MG/1.7ML [Concomitant]
     Indication: Product used for unknown indication
     Dosage: 120MG/1.7ML
  17. VITAMIN B CO TAB [Concomitant]
     Indication: Product used for unknown indication

REACTIONS (5)
  - Cholelithiasis [Not Recovered/Not Resolved]
  - Diarrhoea [Not Recovered/Not Resolved]
  - Weight decreased [Not Recovered/Not Resolved]
  - Decreased appetite [Not Recovered/Not Resolved]
  - Product use issue [Unknown]
